FAERS Safety Report 6764338-5 (Version None)
Quarter: 2010Q2

REPORT INFORMATION
  Report Type: 
  Country: None (occurrence: None)
  Receive Date: 20100610
  Receipt Date: 20100420
  Transmission Date: 20101027
  Serious: Yes (Hospitalization, Other)
  Sender: FDA-Public Use
  Company Number: US-BAYER-201011110NA

PATIENT
  Age: 40 Year
  Sex: Female
  Weight: 116 kg

DRUGS (2)
  1. YASMIN [Suspect]
     Indication: ORAL CONTRACEPTION
     Route: 048
     Dates: start: 20060301, end: 20070101
  2. NSAID'S [Concomitant]
     Dates: start: 19950101

REACTIONS (5)
  - DYSPNOEA [None]
  - GALLBLADDER DISORDER [None]
  - NAUSEA [None]
  - OEDEMA PERIPHERAL [None]
  - PAIN [None]
